FAERS Safety Report 6816569-3 (Version None)
Quarter: 2010Q3

REPORT INFORMATION
  Report Type: 
  Country: None (occurrence: None)
  Receive Date: 20100706
  Receipt Date: 20100623
  Transmission Date: 20110219
  Serious: Yes (Hospitalization, Other)
  Sender: FDA-Public Use
  Company Number: US-ELI_LILLY_AND_COMPANY-US201006006387

PATIENT
  Sex: Male
  Weight: 86.168 kg

DRUGS (1)
  1. BYETTA [Suspect]
     Indication: TYPE 2 DIABETES MELLITUS
     Dosage: 10 UG, 2/D
     Dates: start: 20050101

REACTIONS (9)
  - APPETITE DISORDER [None]
  - DYSPNOEA [None]
  - FAECAL INCONTINENCE [None]
  - GASTROINTESTINAL HAEMORRHAGE [None]
  - HOSPITALISATION [None]
  - NEOPLASM [None]
  - SLEEP APNOEA SYNDROME [None]
  - SLEEP DISORDER [None]
  - WEIGHT DECREASED [None]
